FAERS Safety Report 24683457 (Version 2)
Quarter: 2025Q2

REPORT INFORMATION
  Report Type: Spontaneous
  Country: CA (occurrence: CA)
  Receive Date: 20241201
  Receipt Date: 20250625
  Transmission Date: 20250716
  Serious: Yes (Death, Other)
  Sender: BRISTOL-MYERS SQUIBB COMPANY
  Company Number: CA-BRISTOL-MYERS SQUIBB COMPANY-2024-186526

PATIENT
  Age: 44 Year
  Sex: Female

DRUGS (233)
  1. ORENCIA [Suspect]
     Active Substance: ABATACEPT
     Indication: Rheumatoid arthritis
     Route: 042
  2. ORENCIA [Suspect]
     Active Substance: ABATACEPT
     Route: 042
  3. ORENCIA [Suspect]
     Active Substance: ABATACEPT
     Route: 042
  4. ORENCIA [Suspect]
     Active Substance: ABATACEPT
     Indication: Rheumatoid arthritis
     Route: 058
  5. ORENCIA [Suspect]
     Active Substance: ABATACEPT
     Route: 058
  6. ORENCIA [Suspect]
     Active Substance: ABATACEPT
     Route: 058
  7. ORENCIA [Suspect]
     Active Substance: ABATACEPT
     Route: 058
  8. ORENCIA [Suspect]
     Active Substance: ABATACEPT
     Indication: Rheumatoid arthritis
  9. ORENCIA [Suspect]
     Active Substance: ABATACEPT
     Route: 058
  10. ORENCIA [Suspect]
     Active Substance: ABATACEPT
     Route: 058
  11. ORENCIA [Suspect]
     Active Substance: ABATACEPT
     Route: 058
  12. ORENCIA [Suspect]
     Active Substance: ABATACEPT
     Route: 058
  13. ORENCIA [Suspect]
     Active Substance: ABATACEPT
     Route: 042
  14. VITAMIN C [Concomitant]
     Active Substance: ASCORBIC ACID
     Indication: Product used for unknown indication
  15. VITAMIN C [Concomitant]
     Active Substance: ASCORBIC ACID
     Route: 016
  16. VITAMIN C [Concomitant]
     Active Substance: ASCORBIC ACID
  17. ACETAMINOPHEN [Concomitant]
     Active Substance: ACETAMINOPHEN
     Indication: Pyrexia
  18. ACETAMINOPHEN [Concomitant]
     Active Substance: ACETAMINOPHEN
  19. ACETAMINOPHEN [Concomitant]
     Active Substance: ACETAMINOPHEN
  20. ACETAMINOPHEN [Concomitant]
     Active Substance: ACETAMINOPHEN
  21. ACETAMINOPHEN [Concomitant]
     Active Substance: ACETAMINOPHEN
  22. ACETAMINOPHEN [Concomitant]
     Active Substance: ACETAMINOPHEN
  23. ACETAMINOPHEN AND CODEINE [Concomitant]
     Active Substance: ACETAMINOPHEN\CODEINE PHOSPHATE
     Indication: Product used for unknown indication
  24. ACETAMINOPHEN\CODEINE PHOSPHATE [Concomitant]
     Active Substance: ACETAMINOPHEN\CODEINE PHOSPHATE
     Indication: Product used for unknown indication
  25. ACTEMRA [Concomitant]
     Active Substance: TOCILIZUMAB
     Indication: Rheumatoid arthritis
  26. ACTEMRA [Concomitant]
     Active Substance: TOCILIZUMAB
     Route: 042
  27. ACTEMRA [Concomitant]
     Active Substance: TOCILIZUMAB
  28. ACTEMRA [Concomitant]
     Active Substance: TOCILIZUMAB
     Route: 042
  29. ACTEMRA [Concomitant]
     Active Substance: TOCILIZUMAB
  30. ACTEMRA [Concomitant]
     Active Substance: TOCILIZUMAB
     Route: 042
  31. ACTEMRA [Concomitant]
     Active Substance: TOCILIZUMAB
     Route: 042
  32. ACTEMRA [Concomitant]
     Active Substance: TOCILIZUMAB
  33. ACTEMRA [Concomitant]
     Active Substance: TOCILIZUMAB
  34. ACTEMRA [Concomitant]
     Active Substance: TOCILIZUMAB
  35. ACTEMRA [Concomitant]
     Active Substance: TOCILIZUMAB
     Route: 042
  36. ACTEMRA [Concomitant]
     Active Substance: TOCILIZUMAB
     Route: 058
  37. ACTEMRA [Concomitant]
     Active Substance: TOCILIZUMAB
     Route: 042
  38. ACTEMRA [Concomitant]
     Active Substance: TOCILIZUMAB
     Route: 042
  39. ACTEMRA [Concomitant]
     Active Substance: TOCILIZUMAB
     Route: 042
  40. ADALIMUMAB [Concomitant]
     Active Substance: ADALIMUMAB
     Indication: Rheumatoid arthritis
     Route: 058
  41. ALENDRONIC ACID [Concomitant]
     Active Substance: ALENDRONIC ACID
     Indication: Rheumatoid arthritis
  42. ALENDRONIC ACID [Concomitant]
     Active Substance: ALENDRONIC ACID
  43. PANTOPRAZOLE SODIUM ANHYDROUS [Concomitant]
     Active Substance: PANTOPRAZOLE SODIUM ANHYDROUS
     Indication: Product used for unknown indication
  44. PANTOPRAZOLE SODIUM ANHYDROUS [Concomitant]
     Active Substance: PANTOPRAZOLE SODIUM ANHYDROUS
  45. PREDNISONE [Concomitant]
     Active Substance: PREDNISONE
     Indication: Rheumatoid arthritis
     Route: 048
  46. PREDNISONE [Concomitant]
     Active Substance: PREDNISONE
  47. ARAVA [Concomitant]
     Active Substance: LEFLUNOMIDE
     Indication: Rheumatoid arthritis
     Route: 048
  48. ARAVA [Concomitant]
     Active Substance: LEFLUNOMIDE
  49. ARAVA [Concomitant]
     Active Substance: LEFLUNOMIDE
     Route: 048
  50. ATIVAN [Concomitant]
     Active Substance: LORAZEPAM
     Indication: Product used for unknown indication
  51. CAFFEINE [Concomitant]
     Active Substance: CAFFEINE
     Indication: Product used for unknown indication
  52. CALCIUM CARBONATE [Concomitant]
     Active Substance: CALCIUM CARBONATE
     Indication: Product used for unknown indication
  53. CALCIUM GLUBIONATE [Concomitant]
     Active Substance: CALCIUM GLUBIONATE
     Indication: Product used for unknown indication
  54. CELEBREX [Concomitant]
     Active Substance: CELECOXIB
     Indication: Product used for unknown indication
     Route: 048
  55. CELEBREX [Concomitant]
     Active Substance: CELECOXIB
  56. CETIRIZINE [Concomitant]
     Active Substance: CETIRIZINE HYDROCHLORIDE
     Indication: Product used for unknown indication
  57. CETIRIZINE [Concomitant]
     Active Substance: CETIRIZINE HYDROCHLORIDE
  58. CETIRIZINE HYDROCHLORIDE [Concomitant]
     Active Substance: CETIRIZINE HYDROCHLORIDE
     Indication: Rheumatoid arthritis
     Route: 016
  59. CETIRIZINE HYDROCHLORIDE [Concomitant]
     Active Substance: CETIRIZINE HYDROCHLORIDE
     Route: 042
  60. CETIRIZINE HYDROCHLORIDE [Concomitant]
     Active Substance: CETIRIZINE HYDROCHLORIDE
     Route: 016
  61. CETIRIZINE HYDROCHLORIDE [Concomitant]
     Active Substance: CETIRIZINE HYDROCHLORIDE
  62. CETIRIZINE HYDROCHLORIDE [Concomitant]
     Active Substance: CETIRIZINE HYDROCHLORIDE
  63. CETIRIZINE HYDROCHLORIDE [Concomitant]
     Active Substance: CETIRIZINE HYDROCHLORIDE
  64. CHLORAPREP [Concomitant]
     Active Substance: CHLORHEXIDINE GLUCONATE\ISOPROPYL ALCOHOL
     Indication: Rheumatoid arthritis
     Route: 061
  65. CHLORAPREP [Concomitant]
     Active Substance: CHLORHEXIDINE GLUCONATE\ISOPROPYL ALCOHOL
  66. CHLORHEXIDINE [Concomitant]
     Active Substance: CHLORHEXIDINE
     Indication: Product used for unknown indication
  67. CHLORHEXIDINE [Concomitant]
     Active Substance: CHLORHEXIDINE
     Route: 061
  68. CHLORHEXIDINE [Concomitant]
     Active Substance: CHLORHEXIDINE
     Route: 048
  69. CHLORHEXIDINE [Concomitant]
     Active Substance: CHLORHEXIDINE
  70. CHLORHEXIDINE GLUCONATE [Concomitant]
     Active Substance: CHLORHEXIDINE GLUCONATE
     Indication: Product used for unknown indication
  71. CHOLECALCIFEROL [Concomitant]
     Active Substance: CHOLECALCIFEROL
     Indication: Product used for unknown indication
  72. CIMZIA [Concomitant]
     Active Substance: CERTOLIZUMAB PEGOL
     Indication: Rheumatoid arthritis
  73. CIMZIA [Concomitant]
     Active Substance: CERTOLIZUMAB PEGOL
     Route: 058
  74. CIMZIA [Concomitant]
     Active Substance: CERTOLIZUMAB PEGOL
     Route: 058
  75. CODEINE [Concomitant]
     Active Substance: CODEINE
     Indication: Product used for unknown indication
  76. CORTISONE ACETATE [Concomitant]
     Active Substance: CORTISONE ACETATE
     Indication: Rheumatoid arthritis
     Route: 061
  77. CORTISONE ACETATE [Concomitant]
     Active Substance: CORTISONE ACETATE
  78. COSENTYX [Concomitant]
     Active Substance: SECUKINUMAB
     Indication: Product used for unknown indication
  79. COSENTYX [Concomitant]
     Active Substance: SECUKINUMAB
  80. DESOGESTREL\ETHINYL ESTRADIOL [Concomitant]
     Active Substance: DESOGESTREL\ETHINYL ESTRADIOL
     Indication: Product used for unknown indication
  81. DESOXIMETASONE [Concomitant]
     Active Substance: DESOXIMETASONE
     Indication: Rheumatoid arthritis
  82. DESOXIMETASONE [Concomitant]
     Active Substance: DESOXIMETASONE
     Route: 048
  83. DESOXIMETASONE [Concomitant]
     Active Substance: DESOXIMETASONE
  84. DESOXIMETASONE [Concomitant]
     Active Substance: DESOXIMETASONE
     Route: 003
  85. DESOXIMETASONE [Concomitant]
     Active Substance: DESOXIMETASONE
     Route: 003
  86. DESOXIMETASONE [Concomitant]
     Active Substance: DESOXIMETASONE
  87. DESOXIMETASONE [Concomitant]
     Active Substance: DESOXIMETASONE
     Route: 003
  88. DESOXIMETASONE [Concomitant]
     Active Substance: DESOXIMETASONE
  89. DESOXIMETASONE [Concomitant]
     Active Substance: DESOXIMETASONE
     Route: 048
  90. DESOXIMETASONE [Concomitant]
     Active Substance: DESOXIMETASONE
     Route: 048
  91. DESOXIMETASONE [Concomitant]
     Active Substance: DESOXIMETASONE
     Route: 061
  92. DESOXIMETASONE [Concomitant]
     Active Substance: DESOXIMETASONE
  93. DESOXIMETASONE [Concomitant]
     Active Substance: DESOXIMETASONE
     Route: 003
  94. DESOXIMETASONE [Concomitant]
     Active Substance: DESOXIMETASONE
  95. DICLOFENAC [Concomitant]
     Active Substance: DICLOFENAC
     Indication: Product used for unknown indication
     Route: 031
  96. DICLOFENAC [Concomitant]
     Active Substance: DICLOFENAC
  97. DICLOFENAC POTASSIUM [Concomitant]
     Active Substance: DICLOFENAC POTASSIUM
     Indication: Rheumatoid arthritis
  98. DICLOFENAC SODIUM [Concomitant]
     Active Substance: DICLOFENAC SODIUM
     Indication: Rheumatoid arthritis
  99. ENBREL [Concomitant]
     Active Substance: ETANERCEPT
     Indication: Rheumatoid arthritis
  100. ENBREL [Concomitant]
     Active Substance: ETANERCEPT
     Route: 058
  101. ENBREL [Concomitant]
     Active Substance: ETANERCEPT
  102. ENBREL [Concomitant]
     Active Substance: ETANERCEPT
  103. ENBREL [Concomitant]
     Active Substance: ETANERCEPT
     Route: 058
  104. ENBREL [Concomitant]
     Active Substance: ETANERCEPT
     Route: 058
  105. ENBREL [Concomitant]
     Active Substance: ETANERCEPT
  106. ENBREL [Concomitant]
     Active Substance: ETANERCEPT
     Route: 058
  107. ENBREL [Concomitant]
     Active Substance: ETANERCEPT
     Route: 058
  108. ENBREL [Concomitant]
     Active Substance: ETANERCEPT
     Route: 058
  109. ERELZI [Concomitant]
     Active Substance: ETANERCEPT-SZZS
     Indication: Rheumatoid arthritis
  110. ERGOCALCIFEROL [Concomitant]
     Active Substance: ERGOCALCIFEROL
     Indication: Product used for unknown indication
  111. FOLIC ACID [Concomitant]
     Active Substance: FOLIC ACID
     Indication: Rheumatoid arthritis
  112. FOLIC ACID [Concomitant]
     Active Substance: FOLIC ACID
  113. FOLIC ACID [Concomitant]
     Active Substance: FOLIC ACID
  114. FOSAMAX [Concomitant]
     Active Substance: ALENDRONATE SODIUM
     Indication: Rheumatoid arthritis
     Route: 048
  115. FOSAMAX [Concomitant]
     Active Substance: ALENDRONATE SODIUM
  116. GLUCOSAMINE [Concomitant]
     Active Substance: GLUCOSAMINE
     Indication: Product used for unknown indication
  117. GOLIMUMAB [Concomitant]
     Active Substance: GOLIMUMAB
     Indication: Product used for unknown indication
  118. HUMIRA [Concomitant]
     Active Substance: ADALIMUMAB
     Indication: Rheumatoid arthritis
     Route: 058
  119. HUMIRA [Concomitant]
     Active Substance: ADALIMUMAB
  120. HYDROCORTISONE [Concomitant]
     Active Substance: HYDROCORTISONE
     Indication: Product used for unknown indication
  121. HYDROXYCHLOROQUINE [Concomitant]
     Active Substance: HYDROXYCHLOROQUINE
     Indication: Systemic lupus erythematosus
  122. HYDROXYCHLOROQUINE [Concomitant]
     Active Substance: HYDROXYCHLOROQUINE
     Indication: Rheumatoid arthritis
  123. HYDROXYCHLOROQUINE [Concomitant]
     Active Substance: HYDROXYCHLOROQUINE
  124. HYDROXYCHLOROQUINE [Concomitant]
     Active Substance: HYDROXYCHLOROQUINE
     Route: 048
  125. HYDROXYCHLOROQUINE [Concomitant]
     Active Substance: HYDROXYCHLOROQUINE
     Route: 048
  126. HYDROXYCHLOROQUINE [Concomitant]
     Active Substance: HYDROXYCHLOROQUINE
  127. IBUPROFEN [Concomitant]
     Active Substance: IBUPROFEN
     Indication: Product used for unknown indication
  128. IBUPROFEN [Concomitant]
     Active Substance: IBUPROFEN
  129. INFLECTRA [Concomitant]
     Active Substance: INFLIXIMAB-DYYB
     Indication: Product used for unknown indication
     Route: 042
  130. INFLIXIMAB [Concomitant]
     Active Substance: INFLIXIMAB
     Indication: Rheumatoid arthritis
  131. ISOPROPYL ALCOHOL [Concomitant]
     Active Substance: ISOPROPYL ALCOHOL
     Indication: Product used for unknown indication
     Route: 061
  132. LANSOPRAZOLE [Concomitant]
     Active Substance: LANSOPRAZOLE
     Indication: Product used for unknown indication
  133. LEFLUNOMIDE [Concomitant]
     Active Substance: LEFLUNOMIDE
     Indication: Rheumatoid arthritis
     Route: 048
  134. LEFLUNOMIDE [Concomitant]
     Active Substance: LEFLUNOMIDE
  135. LEFLUNOMIDE [Concomitant]
     Active Substance: LEFLUNOMIDE
     Route: 048
  136. LEFLUNOMIDE [Concomitant]
     Active Substance: LEFLUNOMIDE
     Route: 058
  137. LEFLUNOMIDE [Concomitant]
     Active Substance: LEFLUNOMIDE
     Route: 048
  138. LEFLUNOMIDE [Concomitant]
     Active Substance: LEFLUNOMIDE
  139. LORAZEPAM [Concomitant]
     Active Substance: LORAZEPAM
     Indication: Product used for unknown indication
  140. MARVELON [Concomitant]
     Active Substance: DESOGESTREL\ETHINYL ESTRADIOL
     Indication: Product used for unknown indication
  141. METHOTREXATE [Concomitant]
     Active Substance: METHOTREXATE
     Indication: Rheumatoid arthritis
     Route: 037
  142. METHOTREXATE [Concomitant]
     Active Substance: METHOTREXATE
  143. METHOTREXATE [Concomitant]
     Active Substance: METHOTREXATE
  144. METHOTREXATE [Concomitant]
     Active Substance: METHOTREXATE
     Route: 052
  145. METHOTREXATE [Concomitant]
     Active Substance: METHOTREXATE
     Route: 058
  146. METHOTREXATE [Concomitant]
     Active Substance: METHOTREXATE
     Route: 013
  147. METHOTREXATE [Concomitant]
     Active Substance: METHOTREXATE
     Route: 048
  148. METHOTREXATE [Concomitant]
     Active Substance: METHOTREXATE
     Route: 048
  149. METHOTREXATE [Concomitant]
     Active Substance: METHOTREXATE
     Route: 048
  150. METHOTREXATE [Concomitant]
     Active Substance: METHOTREXATE
  151. METHOTREXATE [Concomitant]
     Active Substance: METHOTREXATE
     Route: 048
  152. METHOTREXATE [Concomitant]
     Active Substance: METHOTREXATE
     Route: 048
  153. METHOTREXATE [Concomitant]
     Active Substance: METHOTREXATE
  154. METHOTREXATE [Concomitant]
     Active Substance: METHOTREXATE
     Route: 048
  155. METHOTREXATE [Concomitant]
     Active Substance: METHOTREXATE
     Route: 048
  156. METHOTREXATE [Concomitant]
     Active Substance: METHOTREXATE
     Route: 048
  157. METHOTREXATE [Concomitant]
     Active Substance: METHOTREXATE
     Route: 048
  158. METHOTREXATE [Concomitant]
     Active Substance: METHOTREXATE
     Route: 048
  159. OXYCODONE HYDROCHLORIDE [Concomitant]
     Active Substance: OXYCODONE HYDROCHLORIDE
     Indication: Product used for unknown indication
  160. OXYCODONE HYDROCHLORIDE [Concomitant]
     Active Substance: OXYCODONE HYDROCHLORIDE
  161. OXYCODONE HYDROCHLORIDE [Concomitant]
     Active Substance: OXYCODONE HYDROCHLORIDE
  162. OXYCODONE HYDROCHLORIDE [Concomitant]
     Active Substance: OXYCODONE HYDROCHLORIDE
  163. OXYCODONE TEREPHTHALATE [Concomitant]
     Active Substance: OXYCODONE TEREPHTHALATE
     Indication: Product used for unknown indication
  164. PANTOPRAZOLE SODIUM [Concomitant]
     Active Substance: PANTOPRAZOLE SODIUM
     Indication: Product used for unknown indication
  165. PERIOGARD [Concomitant]
     Active Substance: CHLORHEXIDINE GLUCONATE
     Indication: Product used for unknown indication
  166. PERIOGARD [Concomitant]
     Active Substance: CHLORHEXIDINE GLUCONATE
     Route: 048
  167. PHTHALYLSULFATHIAZOLE [Concomitant]
     Active Substance: PHTHALYLSULFATHIAZOLE
     Indication: Product used for unknown indication
     Route: 048
  168. PHTHALYLSULFATHIAZOLE [Concomitant]
     Active Substance: PHTHALYLSULFATHIAZOLE
     Route: 048
  169. PREDNISONE [Concomitant]
     Active Substance: PREDNISONE
     Indication: Rheumatoid arthritis
     Route: 048
  170. PREDNISONE [Concomitant]
     Active Substance: PREDNISONE
     Route: 048
  171. PREDNISONE [Concomitant]
     Active Substance: PREDNISONE
     Route: 048
  172. PSEUDOEPHEDRINE HYDROCHLORIDE [Concomitant]
     Active Substance: PSEUDOEPHEDRINE HYDROCHLORIDE
     Indication: Rheumatoid arthritis
  173. PSEUDOEPHEDRINE HYDROCHLORIDE [Concomitant]
     Active Substance: PSEUDOEPHEDRINE HYDROCHLORIDE
  174. PSEUDOEPHEDRINE HYDROCHLORIDE [Concomitant]
     Active Substance: PSEUDOEPHEDRINE HYDROCHLORIDE
  175. CETIRIZINE HYDROCHLORIDE [Concomitant]
     Active Substance: CETIRIZINE HYDROCHLORIDE
     Indication: Rheumatoid arthritis
  176. CETIRIZINE HYDROCHLORIDE [Concomitant]
     Active Substance: CETIRIZINE HYDROCHLORIDE
     Route: 016
  177. CETIRIZINE HYDROCHLORIDE [Concomitant]
     Active Substance: CETIRIZINE HYDROCHLORIDE
  178. CETIRIZINE HYDROCHLORIDE\PSEUDOEPHEDRINE HYDROCHLORIDE [Concomitant]
     Active Substance: CETIRIZINE HYDROCHLORIDE\PSEUDOEPHEDRINE HYDROCHLORIDE
     Indication: Rheumatoid arthritis
  179. CETIRIZINE HYDROCHLORIDE\PSEUDOEPHEDRINE HYDROCHLORIDE [Concomitant]
     Active Substance: CETIRIZINE HYDROCHLORIDE\PSEUDOEPHEDRINE HYDROCHLORIDE
  180. CETIRIZINE HYDROCHLORIDE\PSEUDOEPHEDRINE HYDROCHLORIDE [Concomitant]
     Active Substance: CETIRIZINE HYDROCHLORIDE\PSEUDOEPHEDRINE HYDROCHLORIDE
  181. REMICADE [Concomitant]
     Active Substance: INFLIXIMAB
     Indication: Rheumatoid arthritis
     Route: 042
  182. REMICADE [Concomitant]
     Active Substance: INFLIXIMAB
  183. REMICADE [Concomitant]
     Active Substance: INFLIXIMAB
     Route: 058
  184. REMICADE [Concomitant]
     Active Substance: INFLIXIMAB
     Route: 042
  185. RITUXIMAB [Concomitant]
     Active Substance: RITUXIMAB
     Indication: Rheumatoid arthritis
     Route: 058
  186. RITUXIMAB [Concomitant]
     Active Substance: RITUXIMAB
     Route: 042
  187. RITUXIMAB [Concomitant]
     Active Substance: RITUXIMAB
     Route: 042
  188. RITUXIMAB [Concomitant]
     Active Substance: RITUXIMAB
     Route: 042
  189. RITUXIMAB [Concomitant]
     Active Substance: RITUXIMAB
     Route: 058
  190. RITUXIMAB [Concomitant]
     Active Substance: RITUXIMAB
  191. SULFASALAZINE [Concomitant]
     Active Substance: SULFASALAZINE
     Indication: Product used for unknown indication
  192. FISH OIL [Concomitant]
     Active Substance: FISH OIL
     Indication: Product used for unknown indication
  193. SECUKINUMAB [Concomitant]
     Active Substance: SECUKINUMAB
     Indication: Product used for unknown indication
  194. SIMPONI [Concomitant]
     Active Substance: GOLIMUMAB
     Indication: Rheumatoid arthritis
     Route: 058
  195. SIMPONI [Concomitant]
     Active Substance: GOLIMUMAB
     Route: 052
  196. SIMPONI [Concomitant]
     Active Substance: GOLIMUMAB
     Route: 042
  197. SIMPONI [Concomitant]
     Active Substance: GOLIMUMAB
     Route: 058
  198. STELARA [Concomitant]
     Active Substance: USTEKINUMAB
     Indication: Product used for unknown indication
     Route: 058
  199. SULFAMETHOXAZOLE\TRIMETHOPRIM [Concomitant]
     Active Substance: SULFAMETHOXAZOLE\TRIMETHOPRIM
     Indication: Product used for unknown indication
  200. SULFAMETHOXAZOLE\TRIMETHOPRIM [Concomitant]
     Active Substance: SULFAMETHOXAZOLE\TRIMETHOPRIM
  201. SULFASALAZINE [Concomitant]
     Active Substance: SULFASALAZINE
     Indication: Rheumatoid arthritis
     Route: 048
  202. SULFASALAZINE [Concomitant]
     Active Substance: SULFASALAZINE
     Route: 048
  203. SULFASALAZINE [Concomitant]
     Active Substance: SULFASALAZINE
     Route: 048
  204. SULFASALAZINE [Concomitant]
     Active Substance: SULFASALAZINE
  205. SULFASALAZINE [Concomitant]
     Active Substance: SULFASALAZINE
     Route: 048
  206. SULFASALAZINE [Concomitant]
     Active Substance: SULFASALAZINE
     Route: 048
  207. SULFASALAZINE [Concomitant]
     Active Substance: SULFASALAZINE
     Route: 048
  208. SULFASALAZINE [Concomitant]
     Active Substance: SULFASALAZINE
     Route: 048
  209. TOCILIZUMAB [Concomitant]
     Active Substance: TOCILIZUMAB
     Indication: Rheumatoid arthritis
  210. TOFACITINIB [Concomitant]
     Active Substance: TOFACITINIB
     Indication: Rheumatoid arthritis
  211. TOFACITINIB [Concomitant]
     Active Substance: TOFACITINIB
  212. TOFACITINIB [Concomitant]
     Active Substance: TOFACITINIB
  213. TOFACITINIB [Concomitant]
     Active Substance: TOFACITINIB
  214. TRIMETHOPRIM [Concomitant]
     Active Substance: TRIMETHOPRIM
     Indication: Product used for unknown indication
  215. TYLENOL [Concomitant]
     Active Substance: ACETAMINOPHEN
     Indication: Rheumatoid arthritis
  216. TYLENOL [Concomitant]
     Active Substance: ACETAMINOPHEN
     Route: 058
  217. TYLENOL [Concomitant]
     Active Substance: ACETAMINOPHEN
     Route: 042
  218. TYLENOL [Concomitant]
     Active Substance: ACETAMINOPHEN
     Route: 058
  219. TYLENOL [Concomitant]
     Active Substance: ACETAMINOPHEN
  220. TYLENOL [Concomitant]
     Active Substance: ACETAMINOPHEN
     Route: 042
  221. VITAMIN D3 [Concomitant]
     Active Substance: CHOLECALCIFEROL
     Indication: Product used for unknown indication
  222. XELJANZ [Concomitant]
     Active Substance: TOFACITINIB CITRATE
     Indication: Rheumatoid arthritis
  223. XELJANZ [Concomitant]
     Active Substance: TOFACITINIB CITRATE
  224. XELJANZ [Concomitant]
     Active Substance: TOFACITINIB CITRATE
  225. XELJANZ [Concomitant]
     Active Substance: TOFACITINIB CITRATE
  226. XELJANZ [Concomitant]
     Active Substance: TOFACITINIB CITRATE
  227. XELJANZ [Concomitant]
     Active Substance: TOFACITINIB CITRATE
  228. XELJANZ [Concomitant]
     Active Substance: TOFACITINIB CITRATE
  229. ZOPICLONE [Concomitant]
     Active Substance: ZOPICLONE
     Indication: Product used for unknown indication
  230. DICLOFENAC DIETHYLAMINE [Concomitant]
     Active Substance: DICLOFENAC DIETHYLAMINE
     Indication: Rheumatoid arthritis
  231. TUMS [Concomitant]
     Active Substance: CALCIUM CARBONATE
     Indication: Product used for unknown indication
  232. TYLENOL WITH CODEINE [Concomitant]
     Active Substance: ACETAMINOPHEN\CODEINE PHOSPHATE
     Indication: Product used for unknown indication
  233. DICLOFENAC DIETHYLAMINE [Concomitant]
     Active Substance: DICLOFENAC DIETHYLAMINE
     Indication: Rheumatoid arthritis

REACTIONS (1)
  - Death [Fatal]
